FAERS Safety Report 25352980 (Version 1)
Quarter: 2025Q2

REPORT INFORMATION
  Report Type: Spontaneous
  Country: IN (occurrence: IN)
  Receive Date: 20250523
  Receipt Date: 20250523
  Transmission Date: 20250716
  Serious: Yes (Death, Hospitalization, Other)
  Sender: PFIZER
  Company Number: IN-PFIZER INC-PV202300082019

PATIENT
  Age: 72 Year
  Sex: Female
  Weight: 63 kg

DRUGS (7)
  1. DACOMITINIB [Suspect]
     Active Substance: DACOMITINIB
     Indication: Lung adenocarcinoma
     Dosage: 30 MG, 1X/DAY
     Route: 048
  2. DACOMITINIB [Suspect]
     Active Substance: DACOMITINIB
     Dosage: 30 MG, DAILY
     Dates: start: 202210
  3. MEGASTY [Concomitant]
     Dosage: 1 DF, 2X/DAY
  4. CALCIUM CARBONATE\CHOLECALCIFEROL [Concomitant]
     Active Substance: CALCIUM CARBONATE\CHOLECALCIFEROL
     Dosage: UNK, 1X/DAY
  5. ATIVAN [Concomitant]
     Active Substance: LORAZEPAM
     Dosage: 2 MG, 1X/DAY
  6. VENUSIA MAX [Concomitant]
     Dosage: UNK, 2X/DAY
  7. SODIUM BICARBONATE [Concomitant]
     Active Substance: SODIUM BICARBONATE
     Dosage: UNK, 3X/DAY

REACTIONS (14)
  - Death [Fatal]
  - Metastases to liver [Unknown]
  - Malignant neoplasm progression [Unknown]
  - Diarrhoea [Not Recovered/Not Resolved]
  - Chest pain [Unknown]
  - Dyspnoea exertional [Unknown]
  - Mucosal inflammation [Unknown]
  - Balance disorder [Unknown]
  - Asthenia [Unknown]
  - Decreased appetite [Unknown]
  - Wheezing [Unknown]
  - Chronic obstructive pulmonary disease [Unknown]
  - Body mass index increased [Unknown]
  - Blood pressure systolic increased [Unknown]

NARRATIVE: CASE EVENT DATE: 20221126
